FAERS Safety Report 10774124 (Version 1)
Quarter: 2015Q1

REPORT INFORMATION
  Report Type: Spontaneous
  Country: US (occurrence: US)
  Receive Date: 20150208
  Receipt Date: 20150208
  Transmission Date: 20150721
  Serious: No
  Sender: FDA-Public Use
  Company Number: US-TEVA-535049USA

PATIENT

DRUGS (1)
  1. COPAXONE [Suspect]
     Active Substance: GLATIRAMER ACETATE
     Indication: MULTIPLE SCLEROSIS

REACTIONS (5)
  - Injection site swelling [Unknown]
  - Fatigue [Unknown]
  - Injection site mass [Unknown]
  - Injection site pruritus [Unknown]
  - Injection site warmth [Unknown]

NARRATIVE: CASE EVENT DATE: 201501
